FAERS Safety Report 9957336 (Version 1)
Quarter: 2014Q1

REPORT INFORMATION
  Report Type: Report from Study
  Country: US (occurrence: US)
  Receive Date: 20140304
  Receipt Date: 20140304
  Transmission Date: 20141002
  Serious: No
  Sender: FDA-Public Use
  Company Number: US-ABBVIE-13P-163-1096948-00

PATIENT
  Age: 65 Year
  Sex: Female
  Weight: 67.19 kg

DRUGS (4)
  1. HUMIRA [Suspect]
     Indication: RHEUMATOID ARTHRITIS
     Route: 058
     Dates: start: 2008, end: 201208
  2. HUMIRA [Suspect]
     Route: 058
     Dates: start: 20130412
  3. VITAMINS NOS [Concomitant]
     Indication: PRODUCT USED FOR UNKNOWN INDICATION
  4. TRAZADONE [Concomitant]
     Indication: INSOMNIA

REACTIONS (6)
  - Sensation of foreign body [Recovering/Resolving]
  - Chest X-ray abnormal [Recovering/Resolving]
  - Pneumonia bacterial [Recovered/Resolved]
  - Pain [Recovered/Resolved]
  - Atypical pneumonia [Recovered/Resolved]
  - Fatigue [Not Recovered/Not Resolved]
